FAERS Safety Report 8511625-6 (Version None)
Quarter: 2012Q3

REPORT INFORMATION
  Report Type: 
  Country: None (occurrence: None)
  Receive Date: 20120716
  Receipt Date: 20120711
  Transmission Date: 20120928
  Serious: Yes (Other)
  Sender: FDA-Public Use
  Company Number: US-PFIZER INC-2012167960

PATIENT
  Sex: Female
  Weight: 67.12 kg

DRUGS (5)
  1. LYRICA [Suspect]
     Indication: NERVE INJURY
     Dosage: 25MG IN THE MORNING, 25MG IN AFTERNOON AND 75 MG AT NIGHT
     Route: 048
     Dates: start: 20110901
  2. NORCO [Concomitant]
     Dosage: HALF TABLET OF 10/325MG, 3X/DAY
  3. ARAVA [Concomitant]
     Indication: RHEUMATOID ARTHRITIS
     Dosage: 20 MG, DAILY
  4. AMITRIPTYLINE [Concomitant]
     Dosage: 50 MG, DAILY
  5. LYRICA [Suspect]
     Indication: FIBROMYALGIA

REACTIONS (1)
  - SINUSITIS [None]
